FAERS Safety Report 25374911 (Version 1)
Quarter: 2025Q2

REPORT INFORMATION
  Report Type: Spontaneous
  Country: US (occurrence: None)
  Receive Date: 20250529
  Receipt Date: 20250529
  Transmission Date: 20250717
  Serious: No
  Sender: FDA-CTU
  Company Number: None

PATIENT
  Age: 47 Year
  Sex: Female
  Weight: 103.5 kg

DRUGS (5)
  1. REPATHA [Suspect]
     Active Substance: EVOLOCUMAB
     Indication: Blood cholesterol increased
     Dates: start: 20250113, end: 20250529
  2. MOTRIN [Concomitant]
     Active Substance: IBUPROFEN
  3. FISH OIL [Concomitant]
     Active Substance: FISH OIL
  4. vital D [Concomitant]
  5. ZYRTEC [Concomitant]
     Active Substance: CETIRIZINE HYDROCHLORIDE

REACTIONS (6)
  - Urticaria [None]
  - Lip swelling [None]
  - Sinus disorder [None]
  - Feeling abnormal [None]
  - Crying [None]
  - Pain [None]

NARRATIVE: CASE EVENT DATE: 20250525
